FAERS Safety Report 7273218-0 (Version None)
Quarter: 2011Q1

REPORT INFORMATION
  Report Type: 
  Country: None (occurrence: None)
  Receive Date: 20110203
  Receipt Date: 20110126
  Transmission Date: 20110831
  Serious: Yes (Other)
  Sender: FDA-Public Use
  Company Number: CA-JNJFOC-20100507739

PATIENT
  Sex: Male
  Weight: 78.93 kg

DRUGS (5)
  1. METOPROLOL [Concomitant]
  2. ASAPHEN [Concomitant]
     Route: 048
  3. ALTACE HCT [Concomitant]
     Dosage: 5MG/12.5MG
     Route: 048
  4. LIPITOR [Concomitant]
     Route: 048
  5. REMICADE [Suspect]
     Indication: CROHN'S DISEASE
     Route: 042

REACTIONS (1)
  - SKIN CANCER [None]
